FAERS Safety Report 20264000 (Version 1)
Quarter: 2021Q4

REPORT INFORMATION
  Report Type: Spontaneous
  Country: US (occurrence: None)
  Receive Date: 20211230
  Receipt Date: 20211230
  Transmission Date: 20220303
  Serious: Yes (Other)
  Sender: FDA-Public Use
  Company Number: None

PATIENT
  Age: 70 Year
  Sex: Male
  Weight: 62.1 kg

DRUGS (6)
  1. CAPECITABINE [Suspect]
     Active Substance: CAPECITABINE
     Indication: Small intestine carcinoma
     Dosage: OTHER FREQUENCY : BIDX14DAYS, 7OFF;?
     Route: 048
  2. acetaminophen 325 [Concomitant]
  3. atorvastatin10 mg [Concomitant]
  4. ONDANSETRON [Concomitant]
     Active Substance: ONDANSETRON
  5. OXYCODONE [Concomitant]
     Active Substance: OXYCODONE
  6. Robaxin 750 mg [Concomitant]

REACTIONS (8)
  - Paraesthesia [None]
  - Pain in jaw [None]
  - Fatigue [None]
  - Asthenia [None]
  - Immunosuppression [None]
  - Impaired work ability [None]
  - Fear of disease [None]
  - Platelet count decreased [None]

NARRATIVE: CASE EVENT DATE: 20211230
